FAERS Safety Report 5470608-3 (Version None)
Quarter: 2007Q3

REPORT INFORMATION
  Report Type: 
  Country: None (occurrence: None)
  Receive Date: 20070820
  Receipt Date: 20070501
  Transmission Date: 20080115
  Serious: No
  Sender: FDA-Public Use
  Company Number: WAES 0705USA00338

PATIENT
  Age: 65 Year
  Sex: Female

DRUGS (5)
  1. JANUVIA [Suspect]
     Indication: TYPE 2 DIABETES MELLITUS
     Dosage: 100 MG/DAILY/PO
     Route: 048
     Dates: start: 20070327
  2. GLUCOPHAGE [Concomitant]
  3. LANTUS [Concomitant]
  4. LIPITOR [Concomitant]
  5. TARKA [Concomitant]

REACTIONS (1)
  - HYPOGLYCAEMIA [None]
